FAERS Safety Report 6098799-4 (Version None)
Quarter: 2009Q1

REPORT INFORMATION
  Report Type: 
  Country: None (occurrence: None)
  Receive Date: 20090302
  Receipt Date: 20090218
  Transmission Date: 20090719
  Serious: Yes (Other)
  Sender: FDA-Public Use
  Company Number: DE-PFIZER INC-2009171699

PATIENT

DRUGS (1)
  1. HEPARIN SODIUM [Suspect]

REACTIONS (4)
  - CHOLANGITIS SCLEROSING [None]
  - HEPARIN-INDUCED THROMBOCYTOPENIA [None]
  - INTRA-ABDOMINAL HAEMATOMA [None]
  - PULMONARY EMBOLISM [None]
